FAERS Safety Report 11442400 (Version 3)
Quarter: 2016Q2

REPORT INFORMATION
  Report Type: Spontaneous
  Country: US (occurrence: US)
  Receive Date: 20150901
  Receipt Date: 20160419
  Transmission Date: 20160815
  Serious: No
  Sender: FDA-Public Use
  Company Number: US-ACTELION PHARMACEUTICALS US, INC.-A-NJ2015-123096

PATIENT
  Age: 73 Year
  Sex: Female

DRUGS (1)
  1. OPSUMIT [Suspect]
     Active Substance: MACITENTAN
     Indication: PULMONARY ARTERIAL HYPERTENSION
     Dosage: 10 MG, QD
     Route: 048
     Dates: start: 20141020

REACTIONS (6)
  - Hypersensitivity [Unknown]
  - Drug dose omission [Unknown]
  - Oedema peripheral [Unknown]
  - Vomiting [Unknown]
  - Dyspnoea [Unknown]
  - Dyspnoea exertional [Unknown]
